FAERS Safety Report 9661210 (Version 1)
Quarter: 2013Q4

REPORT INFORMATION
  Report Type: Spontaneous
  Country: IT (occurrence: IT)
  Receive Date: 20131031
  Receipt Date: 20131031
  Transmission Date: 20140711
  Serious: Yes (Other)
  Sender: FDA-Public Use
  Company Number: IT-TEVA-440647ISR

PATIENT
  Age: 84 Year
  Sex: Female

DRUGS (1)
  1. LETROZOLO [Suspect]
     Indication: BREAST CANCER
     Dosage: 2.5 MILLIGRAM DAILY;
     Route: 048
     Dates: start: 20130910, end: 20131001

REACTIONS (3)
  - Oedema peripheral [Recovering/Resolving]
  - Hypertensive crisis [Recovering/Resolving]
  - Tachycardia [Recovering/Resolving]
